FAERS Safety Report 24415201 (Version 2)
Quarter: 2024Q4

REPORT INFORMATION
  Report Type: Spontaneous
  Country: AU (occurrence: AU)
  Receive Date: 20241009
  Receipt Date: 20241016
  Transmission Date: 20250115
  Serious: Yes (Life-Threatening, Other)
  Sender: CSL BEHRING
  Company Number: AU-BEH-2024180894

PATIENT
  Age: 13 Year
  Sex: Female
  Weight: 45 kg

DRUGS (13)
  1. ALBUREX [Suspect]
     Active Substance: ALBUMIN HUMAN
     Indication: Sepsis
     Dosage: 225 ML
     Route: 042
     Dates: start: 20240829, end: 20240829
  2. PIPERACILLIN SODIUM\TAZOBACTAM SODIUM [Suspect]
     Active Substance: PIPERACILLIN SODIUM\TAZOBACTAM SODIUM
     Indication: Product used for unknown indication
     Dosage: 4.5 G
     Dates: start: 20240829
  3. PARECOXIB [Suspect]
     Active Substance: PARECOXIB
     Indication: Product used for unknown indication
     Dosage: UNK
     Dates: start: 20240829
  4. HYDROMORPHONE [Concomitant]
     Active Substance: HYDROMORPHONE
  5. KETAMINE [Concomitant]
     Active Substance: KETAMINE
  6. VANCOMYCIN [Concomitant]
     Active Substance: VANCOMYCIN
     Dosage: 675 MG
     Dates: start: 20240829, end: 20240831
  7. OMEPRAZOLE [Concomitant]
     Active Substance: OMEPRAZOLE
  8. CEFTRIAXONE [Concomitant]
     Active Substance: CEFTRIAXONE
     Dosage: 2 G
  9. ACETAMINOPHEN [Concomitant]
     Active Substance: ACETAMINOPHEN
     Dosage: 675 MG, BID
  10. IBUPROFEN [Concomitant]
     Active Substance: IBUPROFEN
     Dosage: 400 MG, TID
  11. DOCUSATE SODIUM\SENNOSIDES A AND B [Concomitant]
     Active Substance: DOCUSATE SODIUM\SENNOSIDES A AND B
  12. ALTEPLASE [Concomitant]
     Active Substance: ALTEPLASE
  13. MAGNESIUM ASPARTATE [Concomitant]
     Active Substance: MAGNESIUM ASPARTATE

REACTIONS (8)
  - Transfusion reaction [Recovered/Resolved]
  - Anaphylactic reaction [Unknown]
  - Hypotension [Unknown]
  - Hypoxia [Unknown]
  - Wheezing [Unknown]
  - Lip swelling [Unknown]
  - Pruritus [Unknown]
  - Cough [Unknown]

NARRATIVE: CASE EVENT DATE: 20240829
